FAERS Safety Report 9747787 (Version 1)
Quarter: 2013Q4

REPORT INFORMATION
  Report Type: Spontaneous
  Country: US (occurrence: None)
  Receive Date: 20131211
  Receipt Date: 20131211
  Transmission Date: 20140711
  Serious: Yes (Other)
  Sender: FDA-Public Use
  Company Number: None

PATIENT
  Age: 56 None
  Sex: Female

DRUGS (5)
  1. DICLOXACILLIN [Suspect]
     Indication: CELLULITIS
     Route: 048
     Dates: start: 20131206, end: 20131206
  2. ALBUTEROL INHALER [Concomitant]
  3. MINOCYCLINE [Concomitant]
  4. HYDROCODONE/ACETAMINOPHEN [Concomitant]
  5. YOGURT [Concomitant]

REACTIONS (4)
  - Pruritus [None]
  - Somnolence [None]
  - Aggression [None]
  - Dyspnoea [None]
